FAERS Safety Report 16553370 (Version 1)
Quarter: 2019Q3

REPORT INFORMATION
  Report Type: Spontaneous
  Country: US (occurrence: US)
  Receive Date: 20190710
  Receipt Date: 20190710
  Transmission Date: 20191004
  Serious: Yes (Hospitalization, Other)
  Sender: FDA-Public Use
  Company Number: US-EPIC PHARMA LLC-2019EPC00175

PATIENT
  Age: 59 Year
  Sex: Female
  Weight: 54.42 kg

DRUGS (10)
  1. OXYCODONE HYDROCHLORIDE. [Suspect]
     Active Substance: OXYCODONE HYDROCHLORIDE
     Indication: PAIN
     Dosage: 15 MG, 3X/DAY
     Route: 048
     Dates: start: 2017
  2. VICODIN [Concomitant]
     Active Substance: ACETAMINOPHEN\HYDROCODONE BITARTRATE
     Dosage: 1 TABLET, 3X/DAY
  3. OXYCODONE HYDROCHLORIDE. [Suspect]
     Active Substance: OXYCODONE HYDROCHLORIDE
     Dosage: 30 MG, 6X/DAY
     Dates: start: 2012
  4. SYNTHROID [Concomitant]
     Active Substance: LEVOTHYROXINE SODIUM
     Dosage: 0.0112, 1X/DAY
  5. ALPRAZOLAM. [Concomitant]
     Active Substance: ALPRAZOLAM
     Dosage: 1 MG, 3X/DAY
  6. OXYCODONE HYDROCHLORIDE. [Suspect]
     Active Substance: OXYCODONE HYDROCHLORIDE
     Indication: PAIN
     Dosage: 30 MG, 3X/DAY
     Route: 048
     Dates: start: 2010
  7. OXYCODONE HYDROCHLORIDE. [Suspect]
     Active Substance: OXYCODONE HYDROCHLORIDE
     Dosage: 30 MG, 3X/DAY
     Route: 048
  8. ZOLOFT [Concomitant]
     Active Substance: SERTRALINE HYDROCHLORIDE
     Dosage: 50 MG, 1X/DAY
  9. RESTASIS [Concomitant]
     Active Substance: CYCLOSPORINE
     Dosage: UNK, AS NEEDED
  10. DEXTROAMPHET SACCHARAT, AMPHET ASPARTATE, DEXTROAMPHET SULFATE AND AMPHET SULFAT [Concomitant]
     Active Substance: AMPHETAMINE ASPARTATE\AMPHETAMINE SULFATE\DEXTROAMPHETAMINE SACCHARATE\DEXTROAMPHETAMINE SULFATE
     Dosage: 20 MG, 3X/DAY

REACTIONS (33)
  - Spinal fracture [Not Recovered/Not Resolved]
  - Malaise [Not Recovered/Not Resolved]
  - Myopia [Not Recovered/Not Resolved]
  - Upper limb fracture [Not Recovered/Not Resolved]
  - Dysuria [Not Recovered/Not Resolved]
  - Psychiatric symptom [Unknown]
  - Urticaria [Unknown]
  - Drug tolerance [Not Recovered/Not Resolved]
  - Nausea [Not Recovered/Not Resolved]
  - Brain neoplasm [Unknown]
  - Dyspnoea [Unknown]
  - Syncope [Not Recovered/Not Resolved]
  - Seizure [Unknown]
  - Wound infection [Not Recovered/Not Resolved]
  - Hypertension [Not Recovered/Not Resolved]
  - Eye infection [Not Recovered/Not Resolved]
  - Infection parasitic [Not Recovered/Not Resolved]
  - Osteoporosis [Not Recovered/Not Resolved]
  - Fatigue [Not Recovered/Not Resolved]
  - Dyschezia [Not Recovered/Not Resolved]
  - Withdrawal syndrome [Recovered/Resolved]
  - Immune system disorder [Not Recovered/Not Resolved]
  - Concussion [Unknown]
  - Diplopia [Recovering/Resolving]
  - Hypersomnia [Not Recovered/Not Resolved]
  - Fall [Unknown]
  - Pruritus [Not Recovered/Not Resolved]
  - Intestinal obstruction [Unknown]
  - Decreased activity [Not Recovered/Not Resolved]
  - Visual impairment [Recovering/Resolving]
  - Stress [Not Recovered/Not Resolved]
  - Tooth fracture [Not Recovered/Not Resolved]
  - Body height decreased [Not Recovered/Not Resolved]

NARRATIVE: CASE EVENT DATE: 2012
